FAERS Safety Report 9392350 (Version 1)
Quarter: 2013Q3

REPORT INFORMATION
  Report Type: Spontaneous
  Country: US (occurrence: None)
  Receive Date: 20130708
  Receipt Date: 20130708
  Transmission Date: 20140515
  Serious: Yes (Death, Hospitalization)
  Sender: FDA-Public Use
  Company Number: None

PATIENT
  Age: 62 Year
  Sex: Male
  Weight: 133 kg

DRUGS (2)
  1. CYTARABINE [Suspect]
     Dates: end: 20130625
  2. DAUNORUBICIN [Suspect]
     Dates: end: 20130621

REACTIONS (12)
  - Hypotension [None]
  - Abdominal distension [None]
  - Oedema peripheral [None]
  - Mental status changes [None]
  - Condition aggravated [None]
  - Fluid overload [None]
  - Cardiac arrest [None]
  - Pulseless electrical activity [None]
  - Grunting [None]
  - Rales [None]
  - Breath sounds abnormal [None]
  - Oxygen saturation decreased [None]
